FAERS Safety Report 16404390 (Version 2)
Quarter: 2019Q2

REPORT INFORMATION
  Report Type: Spontaneous
  Country: IT (occurrence: IT)
  Receive Date: 20190607
  Receipt Date: 20190617
  Transmission Date: 20190711
  Serious: Yes (Other)
  Sender: FDA-Public Use
  Company Number: IT-OTSUKA-2019_022027

PATIENT
  Age: 35 Year
  Sex: Female

DRUGS (5)
  1. LITHIOFOR [Suspect]
     Active Substance: LITHIUM SULFATE
     Indication: BIPOLAR DISORDER
     Dosage: UNK
     Route: 048
     Dates: start: 201902, end: 201904
  2. EUTIROX [Concomitant]
     Active Substance: LEVOTHYROXINE SODIUM
     Indication: PRODUCT USED FOR UNKNOWN INDICATION
     Dosage: UNK
     Route: 065
  3. ABILIFY [Suspect]
     Active Substance: ARIPIPRAZOLE
     Indication: BIPOLAR DISORDER
     Dosage: UNK
     Route: 065
  4. LITHIOFOR [Suspect]
     Active Substance: LITHIUM SULFATE
     Dosage: AT REDUCED DOSE
     Route: 048
     Dates: start: 20190508
  5. LITHIUM. [Suspect]
     Active Substance: LITHIUM
     Indication: BIPOLAR DISORDER
     Dosage: UNK
     Route: 048

REACTIONS (13)
  - Nystagmus [Unknown]
  - Seizure [Recovering/Resolving]
  - Anxiety [Recovering/Resolving]
  - Psoriasis [Recovering/Resolving]
  - Electrocardiogram abnormal [Unknown]
  - Dyspnoea [Recovering/Resolving]
  - Disturbance in attention [Recovering/Resolving]
  - Tardive dyskinesia [Recovering/Resolving]
  - Alopecia [Recovering/Resolving]
  - Somnolence [Unknown]
  - Agitation [Recovering/Resolving]
  - Diarrhoea [Recovering/Resolving]
  - Depression [Recovering/Resolving]

NARRATIVE: CASE EVENT DATE: 201903
